FAERS Safety Report 5688574-4 (Version None)
Quarter: 2008Q1

REPORT INFORMATION
  Report Type: 
  Country: None (occurrence: None)
  Receive Date: 20080331
  Receipt Date: 20080327
  Transmission Date: 20080703
  Serious: Yes (Other)
  Sender: FDA-Public Use
  Company Number: US-BRISTOL-MYERS SQUIBB COMPANY-14128698

PATIENT
  Sex: Male

DRUGS (4)
  1. COUMADIN [Suspect]
     Dosage: ON 06-MAR-2008 DOSE DECREASED TO 0.5 MG ONCE A DAY
     Dates: start: 20080201
  2. NEURONTIN [Suspect]
     Indication: SPINAL COLUMN STENOSIS
     Dates: start: 20070901
  3. NAPROXEN [Concomitant]
  4. CARBAMAZEPINE [Concomitant]

REACTIONS (3)
  - ATAXIA [None]
  - BALANCE DISORDER [None]
  - OEDEMA PERIPHERAL [None]
